FAERS Safety Report 23290432 (Version 4)
Quarter: 2024Q1

REPORT INFORMATION
  Report Type: Spontaneous
  Country: CN (occurrence: CN)
  Receive Date: 20231213
  Receipt Date: 20240108
  Transmission Date: 20240409
  Serious: Yes (Other)
  Sender: FDA-Public Use
  Company Number: CN-UCBSA-2023058171

PATIENT
  Age: 43 Year
  Sex: Male
  Weight: 49 kg

DRUGS (2)
  1. VIMPAT [Suspect]
     Active Substance: LACOSAMIDE
     Indication: Epilepsy
     Dosage: 50 MILLIGRAM, 2X/DAY (BID) STARTED ABOUT 7-8 YEARS AGO
     Route: 048
     Dates: start: 201607
  2. PAXIL [Concomitant]
     Active Substance: PAROXETINE HYDROCHLORIDE
     Indication: Anxiety disorder
     Dosage: 10 MILLIGRAM, PER NIGHT (SPECIFICATION 20MG)

REACTIONS (4)
  - Epilepsy [Unknown]
  - Change in seizure presentation [Unknown]
  - Therapeutic product effect incomplete [Unknown]
  - Wrong technique in product usage process [Unknown]
